FAERS Safety Report 9458124 (Version 2)
Quarter: 2013Q3

REPORT INFORMATION
  Report Type: Spontaneous
  Country: US (occurrence: US)
  Receive Date: 20130814
  Receipt Date: 20130909
  Transmission Date: 20140515
  Serious: No
  Sender: FDA-Public Use
  Company Number: US-009507513-1308USA003535

PATIENT
  Sex: Male
  Weight: 92.97 kg

DRUGS (2)
  1. SYLATRON [Suspect]
     Indication: MALIGNANT MELANOMA
     Dosage: 300 MICROGRAM, UNK
     Route: 058
     Dates: start: 20130405, end: 20130802
  2. INTERFERON (UNSPECIFIED) [Suspect]
     Indication: MALIGNANT MELANOMA
     Dosage: UNK
     Dates: start: 20130204

REACTIONS (2)
  - Dyspnoea exertional [Recovered/Resolved]
  - Dyspnoea [Recovered/Resolved]
